FAERS Safety Report 9248900 (Version 2)
Quarter: 2013Q2

REPORT INFORMATION
  Report Type: Spontaneous
  Country: US (occurrence: US)
  Receive Date: 20130423
  Receipt Date: 20130515
  Transmission Date: 20140414
  Serious: Yes (Other)
  Sender: FDA-Public Use
  Company Number: US-TEVA-399579USA

PATIENT
  Sex: Male
  Weight: 115.77 kg

DRUGS (13)
  1. PROVIGIL [Suspect]
     Indication: SLEEP DISORDER
     Dosage: 400 MILLIGRAM DAILY;
     Dates: start: 2009
  2. PROVIGIL [Suspect]
     Indication: BRAIN INJURY
     Dosage: 100 MILLIGRAM DAILY;
     Dates: end: 20130417
  3. MIRTAZAPINE [Concomitant]
     Indication: SLEEP DISORDER
     Dosage: 30 MILLIGRAM DAILY;
  4. ESCITALOPRAM [Concomitant]
     Indication: ANXIETY
  5. SIMVASTATIN [Concomitant]
     Indication: BLOOD CHOLESTEROL INCREASED
  6. METOPROLOL [Concomitant]
     Indication: HYPERTENSION
     Dosage: 200 MILLIGRAM DAILY;
  7. JANUMET [Concomitant]
     Indication: DIABETES MELLITUS
     Dosage: 100 MILLIGRAM DAILY;
  8. GABAPENTIN [Concomitant]
     Indication: CONVULSION
     Dosage: 600 MILLIGRAM DAILY;
  9. NABUMETONE [Concomitant]
     Dosage: 1000 MILLIGRAM DAILY;
  10. NIASPAN ER [Concomitant]
     Indication: BLOOD CHOLESTEROL INCREASED
     Dosage: 400 MILLIGRAM DAILY;
  11. OMEPRAZOLE DR [Concomitant]
     Dosage: 1-2 TIMES
  12. BUTALBITAL, ACETAMINOPHEN + CAFFEINE [Concomitant]
     Indication: BRAIN INJURY
  13. BUTALBITAL, ACETAMINOPHEN + CAFFEINE [Concomitant]
     Indication: STRESS

REACTIONS (11)
  - Brain injury [Not Recovered/Not Resolved]
  - Condition aggravated [Not Recovered/Not Resolved]
  - Fatigue [Unknown]
  - Agitation [Unknown]
  - Disturbance in attention [Not Recovered/Not Resolved]
  - Confusional state [Not Recovered/Not Resolved]
  - Memory impairment [Not Recovered/Not Resolved]
  - Distractibility [Not Recovered/Not Resolved]
  - Withdrawal syndrome [Unknown]
  - Incorrect dose administered [Unknown]
  - Off label use [Unknown]
